FAERS Safety Report 5422042-X (Version None)
Quarter: 2007Q3

REPORT INFORMATION
  Report Type: 
  Country: None (occurrence: None)
  Receive Date: 20070820
  Receipt Date: 20070803
  Transmission Date: 20080115
  Serious: Yes (Hospitalization)
  Sender: FDA-Public Use
  Company Number: AZAUS200700233

PATIENT
  Age: 80 Year
  Sex: Female
  Weight: 65.7716 kg

DRUGS (6)
  1. VIDAZA [Suspect]
     Indication: MYELODYSPLASTIC SYNDROME
     Dosage: 75 MG/M2, INTRAVENOUS
     Route: 042
     Dates: start: 20070625, end: 20070629
  2. HYDROCHLOROTHIAZIDE [Concomitant]
  3. ENALAPRIL               (ENALAPRIL) [Concomitant]
  4. METOPROLOL TARTRATE [Concomitant]
  5. ASPIRIN [Concomitant]
  6. DEFERASIROX                      (ALL OTHER THERAPEUTIC PRODUCTS) [Concomitant]

REACTIONS (11)
  - ASTHENIA [None]
  - CAROTID ARTERIOSCLEROSIS [None]
  - HAEMOGLOBIN DECREASED [None]
  - HEART RATE IRREGULAR [None]
  - HYPOTENSION [None]
  - IRON OVERLOAD [None]
  - LOCAL SWELLING [None]
  - LOSS OF CONSCIOUSNESS [None]
  - PYREXIA [None]
  - SEPTIC SHOCK [None]
  - SYNCOPE [None]
